FAERS Safety Report 22355284 (Version 4)
Quarter: 2025Q1

REPORT INFORMATION
  Report Type: Spontaneous
  Country: US (occurrence: US)
  Receive Date: 20230523
  Receipt Date: 20250325
  Transmission Date: 20250409
  Serious: No
  Sender: PFIZER
  Company Number: US-PFIZER INC-PV202300089931

PATIENT
  Age: 84 Year
  Sex: Male
  Weight: 95.7 kg

DRUGS (5)
  1. VYNDAMAX [Suspect]
     Active Substance: TAFAMIDIS
     Indication: Acquired ATTR amyloidosis
     Dosage: 61 MG, 1X/DAY
     Route: 048
  2. VYNDAMAX [Suspect]
     Active Substance: TAFAMIDIS
     Indication: Cardiac amyloidosis
     Dosage: 61 MG, 1X/DAY
     Route: 048
     Dates: start: 202406
  3. VYNDAMAX [Suspect]
     Active Substance: TAFAMIDIS
     Indication: Plasma cell myeloma
  4. CRESTOR [Concomitant]
     Active Substance: ROSUVASTATIN CALCIUM
     Dosage: 20 MG, 1X/DAY
     Route: 048
  5. NEURONTIN [Concomitant]
     Active Substance: GABAPENTIN
     Dosage: TAKE 1 CAPSULE IN THE AM AND 2 AT HS

REACTIONS (1)
  - Hypoacusis [Unknown]
